FAERS Safety Report 13410587 (Version 3)
Quarter: 2022Q4

REPORT INFORMATION
  Report Type: Spontaneous
  Country: US (occurrence: US)
  Receive Date: 20170406
  Receipt Date: 20221227
  Transmission Date: 20230113
  Serious: No
  Sender: FDA-Public Use
  Company Number: US-JNJFOC-20170300315

PATIENT
  Age: 15 Year
  Sex: Male

DRUGS (10)
  1. RISPERDAL [Suspect]
     Active Substance: RISPERIDONE
     Indication: Attention deficit hyperactivity disorder
     Dosage: VARYING DOSES OF 0.5MG, 1MG, 2MG, 3MG AND 1.5MG
     Route: 048
     Dates: start: 20030107, end: 20080408
  2. RISPERDAL [Suspect]
     Active Substance: RISPERIDONE
     Indication: Aggression
     Dosage: ONCE A HOUR OF SLEEP
     Route: 048
     Dates: start: 20110128
  3. RISPERDAL [Suspect]
     Active Substance: RISPERIDONE
     Indication: Anger
     Route: 048
     Dates: start: 20110425
  4. RISPERDAL [Suspect]
     Active Substance: RISPERIDONE
     Indication: Irritability
     Dosage: 1 EVERY NIGHT
     Route: 048
     Dates: start: 201105, end: 201107
  5. RISPERDAL [Suspect]
     Active Substance: RISPERIDONE
     Indication: Affective disorder
     Route: 048
     Dates: start: 20111027, end: 20111222
  6. RISPERDAL [Suspect]
     Active Substance: RISPERIDONE
     Dosage: ONCE A HOUR OF SLEEP
     Route: 048
     Dates: start: 20130520
  7. RISPERIDONE [Suspect]
     Active Substance: RISPERIDONE
     Indication: Attention deficit hyperactivity disorder
     Route: 048
  8. RISPERIDONE [Suspect]
     Active Substance: RISPERIDONE
     Indication: Aggression
     Dosage: VARYING DOSES OF 0.5MG, 1MG, 2MG, 3MG AND 1.5MG
     Route: 048
     Dates: start: 20110204, end: 20110712
  9. RISPERIDONE [Suspect]
     Active Substance: RISPERIDONE
     Indication: Anger
  10. RISPERIDONE [Suspect]
     Active Substance: RISPERIDONE
     Indication: Irritability

REACTIONS (3)
  - Emotional disorder [Unknown]
  - Gynaecomastia [Unknown]
  - Somnolence [Unknown]

NARRATIVE: CASE EVENT DATE: 20080322
